FAERS Safety Report 9619908 (Version 1)
Quarter: 2013Q4

REPORT INFORMATION
  Report Type: Spontaneous
  Country: GB (occurrence: GB)
  Receive Date: 20131014
  Receipt Date: 20131014
  Transmission Date: 20140711
  Serious: Yes (Hospitalization)
  Sender: FDA-Public Use
  Company Number: GB-BAUSCH-BL-2013-005311

PATIENT
  Age: 8 Decade
  Sex: Female

DRUGS (14)
  1. PREDNISOLONE [Suspect]
     Indication: PRODUCT USED FOR UNKNOWN INDICATION
     Dates: start: 20130726, end: 20130910
  2. BORTEZOMIB [Suspect]
     Indication: PRODUCT USED FOR UNKNOWN INDICATION
     Route: 065
     Dates: start: 20130816, end: 20130913
  3. CYCLOPHOSPHAMIDE [Suspect]
     Indication: PRODUCT USED FOR UNKNOWN INDICATION
     Route: 065
     Dates: start: 20130726, end: 20130906
  4. DOMPERIDONE [Suspect]
     Indication: PRODUCT USED FOR UNKNOWN INDICATION
     Route: 048
     Dates: start: 20130726, end: 20130918
  5. DOXORUBICIN [Suspect]
     Indication: PRODUCT USED FOR UNKNOWN INDICATION
     Dates: start: 20130726, end: 20130906
  6. RITUXIMAB [Suspect]
     Indication: PRODUCT USED FOR UNKNOWN INDICATION
     Route: 065
     Dates: start: 20130726, end: 20130906
  7. VINCRISTINE [Suspect]
     Indication: PRODUCT USED FOR UNKNOWN INDICATION
     Route: 065
     Dates: start: 20130726, end: 20130906
  8. ALLOPURINOL [Concomitant]
     Route: 048
     Dates: start: 20130726, end: 20130918
  9. AMIODARONE [Concomitant]
     Route: 048
     Dates: start: 20110303
  10. BISOPROLOL [Concomitant]
     Route: 065
     Dates: start: 20100428
  11. CYCLIZINE [Concomitant]
     Route: 048
     Dates: start: 20130814, end: 20130918
  12. DALTEPARIN SODIUM [Concomitant]
     Route: 058
     Dates: start: 201307, end: 20130918
  13. FUROSEMIDE [Concomitant]
     Route: 048
     Dates: start: 20100428, end: 20130918
  14. LEVOTHYROXINE [Concomitant]
     Route: 048
     Dates: start: 20120525

REACTIONS (9)
  - Dehydration [Not Recovered/Not Resolved]
  - Diarrhoea [Unknown]
  - Syncope [Unknown]
  - Hypotension [Not Recovered/Not Resolved]
  - Nausea [Unknown]
  - Neutropenia [Not Recovered/Not Resolved]
  - Sepsis [Not Recovered/Not Resolved]
  - Oropharyngeal pain [Unknown]
  - Vomiting [Unknown]
